FAERS Safety Report 10084626 (Version 1)
Quarter: 2014Q2

REPORT INFORMATION
  Report Type: Spontaneous
  Country: GB (occurrence: GB)
  Receive Date: 20140417
  Receipt Date: 20140417
  Transmission Date: 20141212
  Serious: Yes (Disabling)
  Sender: FDA-Public Use
  Company Number: GB-PFIZER INC-2014101958

PATIENT
  Age: 72 Year
  Sex: Male
  Weight: 99 kg

DRUGS (8)
  1. DOXAZOSIN MESILATE [Suspect]
     Dosage: UNK
     Dates: start: 20140320
  2. BENDROFLUMETHIAZIDE [Concomitant]
     Dosage: UNK
     Dates: start: 20140109, end: 20140306
  3. BENDROFLUMETHIAZIDE [Concomitant]
     Dosage: UNK
     Dates: start: 20140311
  4. ENALAPRIL [Concomitant]
     Dosage: UNK
     Dates: start: 20131114
  5. FELODIPINE [Concomitant]
     Dosage: UNK
     Dates: start: 20131216
  6. GOSERELIN [Concomitant]
     Dosage: UNK
     Dates: start: 20140121, end: 20140122
  7. GOSERELIN [Concomitant]
     Dosage: UNK
     Dates: start: 20140124, end: 20140125
  8. LIDOCAINE [Concomitant]
     Dosage: UNK
     Dates: start: 20140124, end: 20140125

REACTIONS (2)
  - Joint swelling [Recovered/Resolved]
  - Influenza like illness [Recovered/Resolved]
